FAERS Safety Report 8097579-8 (Version None)
Quarter: 2012Q1

REPORT INFORMATION
  Report Type: 
  Country: None (occurrence: None)
  Receive Date: 20120128
  Receipt Date: 20110722
  Transmission Date: 20120608
  Serious: No
  Sender: FDA-Public Use
  Company Number: US-ABBOTT-07P-163-0378798-00

PATIENT
  Sex: Female
  Weight: 54.48 kg

DRUGS (12)
  1. HUMIRA [Suspect]
     Indication: RHEUMATOID ARTHRITIS
     Route: 058
     Dates: start: 20060701, end: 20070501
  2. BIRTH CONTROL PILLS [Concomitant]
     Indication: CONTRACEPTION
  3. METHYLPREDNISOLONE [Concomitant]
     Indication: ARTHRITIS
     Dates: start: 20080201
  4. KARIVA MIRCETTE [Concomitant]
     Indication: MENOPAUSAL SYMPTOMS
  5. SIMPONI [Suspect]
     Indication: PRODUCT USED FOR UNKNOWN INDICATION
     Dates: start: 20070101, end: 20070101
  6. TOPAMAX [Concomitant]
     Indication: MIGRAINE
     Route: 048
     Dates: start: 20071201
  7. HUMIRA [Suspect]
     Route: 058
     Dates: start: 20070704, end: 20071001
  8. ALLEGRA [Concomitant]
     Indication: SEASONAL ALLERGY
     Route: 048
  9. MAXALT-MLT [Concomitant]
     Indication: MIGRAINE
     Route: 048
  10. HUMIRA [Suspect]
     Route: 058
     Dates: start: 20080410
  11. KARIVA MIRCETTE [Concomitant]
     Indication: ORAL CONTRACEPTION
     Route: 048
  12. FLUTICASONE PROPIONATE [Concomitant]
     Indication: SEASONAL ALLERGY
     Route: 045

REACTIONS (12)
  - ABASIA [None]
  - RESPIRATORY TRACT INFECTION [None]
  - HEADACHE [None]
  - FATIGUE [None]
  - HYPOAESTHESIA [None]
  - MIGRAINE [None]
  - PAIN IN EXTREMITY [None]
  - INJECTION SITE HAEMORRHAGE [None]
  - PARAESTHESIA [None]
  - OEDEMA PERIPHERAL [None]
  - MADAROSIS [None]
  - DRUG DOSE OMISSION [None]
